FAERS Safety Report 4351636-8 (Version None)
Quarter: 2004Q2

REPORT INFORMATION
  Report Type: 
  Country: None (occurrence: None)
  Receive Date: 20040429
  Receipt Date: 20040309
  Transmission Date: 20050107
  Serious: No
  Sender: FDA-Public Use
  Company Number: 2004-114353-NL

PATIENT
  Age: 25 Year
  Sex: Female
  Weight: 53.2 kg

DRUGS (2)
  1. NUVARING [Suspect]
     Indication: CONTRACEPTION
     Dosage: DF DAILY VAGINAL
     Route: 067
     Dates: start: 20040305, end: 20040305
  2. MULTIVITAMIN [Concomitant]

REACTIONS (3)
  - HEADACHE [None]
  - MEDICAL DEVICE COMPLICATION [None]
  - MEDICAL DEVICE DISCOMFORT [None]
